FAERS Safety Report 25509812 (Version 2)
Quarter: 2025Q3

REPORT INFORMATION
  Report Type: Report from Study
  Country: US (occurrence: US)
  Receive Date: 20250703
  Receipt Date: 20250723
  Transmission Date: 20251020
  Serious: Yes (Other)
  Sender: ABBVIE
  Company Number: US-ABBVIE-6347598

PATIENT
  Age: 55 Year
  Sex: Female

DRUGS (1)
  1. SKYRIZI [Suspect]
     Active Substance: RISANKIZUMAB-RZAA
     Indication: Psoriasis
     Route: 058
     Dates: start: 20230208

REACTIONS (3)
  - Tooth extraction [Recovering/Resolving]
  - Graft complication [Not Recovered/Not Resolved]
  - Dental bone graft [Unknown]

NARRATIVE: CASE EVENT DATE: 20250601
